FAERS Safety Report 10255478 (Version 3)
Quarter: 2014Q3

REPORT INFORMATION
  Report Type: Spontaneous
  Country: US (occurrence: US)
  Receive Date: 20140624
  Receipt Date: 20140903
  Transmission Date: 20150326
  Serious: Yes (Other)
  Sender: FDA-Public Use
  Company Number: US-ASTRAZENECA-2014SE44644

PATIENT
  Age: 55 Year
  Sex: Female
  Weight: 62.1 kg

DRUGS (10)
  1. VITAMINS [Concomitant]
     Active Substance: VITAMINS
  2. PREDNISONE. [Concomitant]
     Active Substance: PREDNISONE
     Indication: BRONCHITIS
     Route: 048
     Dates: start: 20140612, end: 20140616
  3. SYMBICORT [Suspect]
     Active Substance: BUDESONIDE\FORMOTEROL FUMARATE DIHYDRATE
     Indication: ASTHMA
     Dosage: 160/4.5 2 PUFFS BID
     Route: 055
     Dates: start: 2009
  4. ELMIRON [Concomitant]
     Active Substance: PENTOSAN POLYSULFATE SODIUM
     Indication: CYSTITIS INTERSTITIAL
     Route: 048
  5. SIMPONI [Concomitant]
     Active Substance: GOLIMUMAB
     Indication: ANKYLOSING SPONDYLITIS
     Dates: start: 2009
  6. DOXYCYCLINE. [Concomitant]
     Active Substance: DOXYCYCLINE
     Indication: BRONCHITIS
     Route: 048
  7. LISINOPRIL. [Suspect]
     Active Substance: LISINOPRIL
     Route: 048
  8. AMLODIPINE BESOLATE [Concomitant]
     Indication: HYPERTENSION
     Route: 048
  9. ANTIBIOTIC [Concomitant]
     Active Substance: UNSPECIFIED INGREDIENT
     Indication: BRONCHITIS
     Route: 048
     Dates: start: 20140612, end: 20140621
  10. ALBUTEROL. [Concomitant]
     Active Substance: ALBUTEROL
     Indication: RESPIRATORY DISORDER
     Dosage: 108 UNK
     Route: 055
     Dates: start: 2013

REACTIONS (9)
  - Wheezing [Unknown]
  - Demyelination [Unknown]
  - Asthma [Recovering/Resolving]
  - Cystitis interstitial [Unknown]
  - Hypertension [Unknown]
  - Intentional product misuse [Unknown]
  - Bronchitis [Recovering/Resolving]
  - Drug hypersensitivity [Unknown]
  - Drug dose omission [Unknown]

NARRATIVE: CASE EVENT DATE: 2010
